FAERS Safety Report 23364061 (Version 2)
Quarter: 2024Q1

REPORT INFORMATION
  Report Type: Report from Study
  Country: US (occurrence: US)
  Receive Date: 20240104
  Receipt Date: 20240322
  Transmission Date: 20240410
  Serious: Yes (Hospitalization)
  Sender: FDA-Public Use
  Company Number: US-AMGEN-USASP2023232986

PATIENT
  Age: 61 Year
  Sex: Male

DRUGS (1)
  1. REPATHA [Suspect]
     Active Substance: EVOLOCUMAB
     Indication: Blood cholesterol increased
     Dosage: 420 MILLIGRAM, QMO
     Route: 065
     Dates: start: 20231211

REACTIONS (8)
  - Chest pain [Unknown]
  - Blood pressure increased [Unknown]
  - Dizziness [Unknown]
  - Tunnel vision [Unknown]
  - Cold sweat [Unknown]
  - Tremor [Unknown]
  - Drug hypersensitivity [Recovered/Resolved]
  - Low density lipoprotein decreased [Recovering/Resolving]

NARRATIVE: CASE EVENT DATE: 20231201
